FAERS Safety Report 9790761 (Version 4)
Quarter: 2014Q1

REPORT INFORMATION
  Report Type: Report from Study
  Country: CA (occurrence: CA)
  Receive Date: 20131231
  Receipt Date: 20140312
  Transmission Date: 20141002
  Serious: Yes (Life-Threatening, Hospitalization, Other)
  Sender: FDA-Public Use
  Company Number: CA-CELGENEUS-028-21880-13115696

PATIENT
  Age: 54 Year
  Sex: Female
  Weight: 63.2 kg

DRUGS (9)
  1. REVLIMID [Suspect]
     Indication: LYMPHOMA
     Dosage: 20 MILLIGRAM
     Route: 048
     Dates: start: 20131113, end: 20131123
  2. RITUXIMAB [Suspect]
     Indication: LYMPHOMA
     Route: 065
     Dates: start: 20131112, end: 20131120
  3. RITUXIMAB [Suspect]
     Route: 065
     Dates: start: 20140122
  4. RITUXIMAB [Suspect]
     Route: 041
     Dates: start: 20140129
  5. RITUXIMAB [Suspect]
     Route: 041
     Dates: start: 20140219
  6. ALLOPURINOL [Concomitant]
     Indication: PROPHYLAXIS
     Route: 065
     Dates: start: 20131112, end: 20131118
  7. BENADRYL [Concomitant]
     Indication: DRUG HYPERSENSITIVITY
     Dosage: 50 MILLIGRAM
     Route: 065
     Dates: start: 20131118, end: 20131123
  8. BENADRYL [Concomitant]
     Indication: DRUG HYPERSENSITIVITY
     Dosage: 25 MILLIGRAM
     Route: 041
     Dates: start: 20131112, end: 20131112
  9. TYLENOL [Concomitant]
     Indication: PREMEDICATION
     Route: 048
     Dates: start: 20131112, end: 20131120

REACTIONS (4)
  - Stevens-Johnson syndrome [Recovered/Resolved]
  - Septic shock [Recovered/Resolved]
  - Bacteraemia [Recovered/Resolved]
  - Thrombocytopenia [Recovered/Resolved]
